FAERS Safety Report 17338672 (Version 1)
Quarter: 2020Q1

REPORT INFORMATION
  Report Type: Spontaneous
  Country: US (occurrence: US)
  Receive Date: 20200129
  Receipt Date: 20200129
  Transmission Date: 20200409
  Serious: Yes (Other)
  Sender: FDA-Public Use
  Company Number: US-SA-2020SA020571

PATIENT
  Age: 73 Year
  Sex: Female

DRUGS (1)
  1. LANTUS [Suspect]
     Active Substance: INSULIN GLARGINE
     Indication: TYPE 2 DIABETES MELLITUS
     Dosage: 20 IU, QD
     Route: 065

REACTIONS (11)
  - Diabetic neuropathy [Unknown]
  - Aortic valve stenosis [Unknown]
  - Transient ischaemic attack [Unknown]
  - Pulmonary embolism [Unknown]
  - Deafness unilateral [Unknown]
  - Gastrooesophageal reflux disease [Unknown]
  - Cerebrovascular accident [Unknown]
  - Sciatica [Unknown]
  - Osteopenia [Unknown]
  - Scoliosis [Unknown]
  - Hypoacusis [Unknown]
